FAERS Safety Report 25131870 (Version 1)
Quarter: 2025Q1

REPORT INFORMATION
  Report Type: Spontaneous
  Country: US (occurrence: US)
  Receive Date: 20250327
  Receipt Date: 20250327
  Transmission Date: 20250408
  Serious: Yes (Hospitalization, Other)
  Sender: PRINSTON PHARMACEUTICAL
  Company Number: US-PRINSTON PHARMACEUTICAL INC.-2025PRN00084

PATIENT
  Age: 70 Year
  Sex: Female

DRUGS (3)
  1. LOSARTAN POTASSIUM [Suspect]
     Active Substance: LOSARTAN POTASSIUM
     Indication: Hypertension
     Dosage: 25 MG, 2X/DAY
     Route: 048
     Dates: start: 202409
  2. CLONIDINE HYDROCHLORIDE [Concomitant]
     Active Substance: CLONIDINE HYDROCHLORIDE
     Dosage: 0.1 MG, 2X/DAY
     Dates: start: 202409
  3. SYNTHROID [Concomitant]
     Active Substance: LEVOTHYROXINE SODIUM

REACTIONS (21)
  - COVID-19 [Unknown]
  - Swollen tongue [Not Recovered/Not Resolved]
  - Muscular weakness [Not Recovered/Not Resolved]
  - Skin haemorrhage [Not Recovered/Not Resolved]
  - Joint swelling [Not Recovered/Not Resolved]
  - Blister rupture [Not Recovered/Not Resolved]
  - Peripheral swelling [Not Recovered/Not Resolved]
  - Heart rate irregular [Not Recovered/Not Resolved]
  - Gait disturbance [Not Recovered/Not Resolved]
  - Muscle spasms [Not Recovered/Not Resolved]
  - Skin discolouration [Not Recovered/Not Resolved]
  - Blister [Not Recovered/Not Resolved]
  - Rash vesicular [Not Recovered/Not Resolved]
  - Dizziness [Not Recovered/Not Resolved]
  - Headache [Not Recovered/Not Resolved]
  - Arthralgia [Not Recovered/Not Resolved]
  - Somnolence [Not Recovered/Not Resolved]
  - Paraesthesia [Not Recovered/Not Resolved]
  - Rash [Not Recovered/Not Resolved]
  - Myalgia [Not Recovered/Not Resolved]
  - Dyspnoea [Not Recovered/Not Resolved]
